FAERS Safety Report 8867719 (Version 1)
Quarter: 2012Q4

REPORT INFORMATION
  Report Type: 
  Country: US (occurrence: US)
  Receive Date: 20121025
  Receipt Date: 20121025
  Transmission Date: 20130627
  Serious: No
  Sender: FDA-Public Use
  Company Number: US-AMGEN-USASP2012018145

PATIENT
  Sex: Female
  Weight: 113.38 kg

DRUGS (9)
  1. ENBREL [Suspect]
     Indication: PRODUCT USED FOR UNKNOWN INDICATION
     Dosage: 25 mg, 2 times/wk
     Route: 058
  2. METHOTREXATE [Concomitant]
     Dosage: 2.5 mg, UNK
  3. METFORMIN [Concomitant]
     Dosage: 500 mg, UNK
  4. GLYBURIDE [Concomitant]
     Dosage: 2.5 mg, UNK
  5. LISINOPRIL [Concomitant]
     Dosage: 2.5 mg, UNK
  6. SIMVASTATIN [Concomitant]
     Dosage: 5 mg, UNK
  7. SALSALATE [Concomitant]
     Dosage: 500 mg, UNK
  8. TYLENOL ARTHRITIS [Concomitant]
     Dosage: 650 mg, UNK
  9. LEUKOVORIN [Concomitant]
     Dosage: 200 mg, UNK

REACTIONS (1)
  - Rash [Unknown]
